FAERS Safety Report 24868123 (Version 2)
Quarter: 2025Q1

REPORT INFORMATION
  Report Type: Spontaneous
  Country: DE (occurrence: DE)
  Receive Date: 20250121
  Receipt Date: 20250123
  Transmission Date: 20250408
  Serious: Yes (Death, Life-Threatening, Hospitalization, Other)
  Sender: MERCK
  Company Number: DE-009507513-2501DEU004765

PATIENT
  Sex: Male
  Weight: 91 kg

DRUGS (7)
  1. WINREVAIR [Suspect]
     Active Substance: SOTATERCEPT-CSRK
     Indication: Pulmonary arterial hypertension
     Dates: start: 20241221, end: 20241221
  2. OXYGEN [Concomitant]
     Active Substance: OXYGEN
     Dates: start: 201909
  3. MACITENTAN [Concomitant]
     Active Substance: MACITENTAN
     Dates: start: 201911
  4. TADALAFIL [Concomitant]
     Active Substance: TADALAFIL
     Dates: start: 202002, end: 202209
  5. TADALAFIL [Concomitant]
     Active Substance: TADALAFIL
     Dates: start: 202211
  6. UNSPECIFIED INGREDIENT [Concomitant]
     Active Substance: UNSPECIFIED INGREDIENT
     Route: 048
     Dates: start: 20210906
  7. RIVAROXABAN [Concomitant]
     Active Substance: RIVAROXABAN
     Dates: start: 20210906

REACTIONS (2)
  - Thrombocytopenia [Fatal]
  - Right ventricular failure [Fatal]

NARRATIVE: CASE EVENT DATE: 20241229
